FAERS Safety Report 9896838 (Version 1)
Quarter: 2014Q1

REPORT INFORMATION
  Report Type: Spontaneous
  Country: FR (occurrence: FR)
  Receive Date: 20140213
  Receipt Date: 20140213
  Transmission Date: 20141002
  Serious: Yes (Hospitalization)
  Sender: FDA-Public Use
  Company Number: FR-ROCHE-1347252

PATIENT
  Age: 64 Year
  Sex: Male

DRUGS (7)
  1. CELLCEPT [Suspect]
     Indication: PROPHYLAXIS AGAINST TRANSPLANT REJECTION
     Route: 065
  2. NOVONORM [Concomitant]
     Route: 065
  3. PROGRAF [Concomitant]
  4. SOLUPRED (FRANCE) [Concomitant]
     Dosage: 5 MG
     Route: 065
  5. KARDEGIC [Concomitant]
     Dosage: 75 MG
     Route: 065
  6. EUPANTOL [Concomitant]
     Dosage: 40 MG
     Route: 065
  7. TEMERIT [Concomitant]
     Dosage: 5 MG
     Route: 065

REACTIONS (3)
  - Diarrhoea [Recovered/Resolved]
  - Asthenia [Recovered/Resolved]
  - Weight decreased [Recovering/Resolving]
